FAERS Safety Report 4810422-2 (Version None)
Quarter: 2005Q4

REPORT INFORMATION
  Report Type: 
  Country: None (occurrence: None)
  Receive Date: 20051025
  Receipt Date: 20051025
  Transmission Date: 20060501
  Serious: No
  Sender: FDA-Public Use
  Company Number: None

PATIENT
  Age: 69 Year
  Sex: Male

DRUGS (16)
  1. WARFARIN [Suspect]
     Indication: ATRIAL FIBRILLATION
     Dosage: 7.5MG PO QHS EXCEPT 1/2 TU/F
     Route: 048
  2. LASIX [Concomitant]
  3. FOSINOPRIL [Concomitant]
  4. METOPROLOL [Concomitant]
  5. POTASSIUM CHLORIDE [Concomitant]
  6. COUMADIN [Concomitant]
  7. MEOLAZONE [Concomitant]
  8. OMEPRAZOLE [Concomitant]
  9. ZOLOFT [Concomitant]
  10. AMITRIPTYLINE HCL [Concomitant]
  11. GLIPIZIDE [Concomitant]
  12. ALLOPURINOL [Concomitant]
  13. REGLAN [Concomitant]
  14. TRAMADOL [Concomitant]
  15. ASPIRIN [Concomitant]
  16. NASOREL [Concomitant]

REACTIONS (4)
  - HAEMATOCRIT DECREASED [None]
  - IRON DEFICIENCY ANAEMIA [None]
  - MEAN CELL VOLUME DECREASED [None]
  - OCCULT BLOOD POSITIVE [None]
